FAERS Safety Report 5216485-7 (Version None)
Quarter: 2006Q4

REPORT INFORMATION
  Report Type: 
  Country: None (occurrence: None)
  Receive Date: 20061129
  Receipt Date: 20030922
  Transmission Date: 20070319
  Serious: No
  Sender: FDA-Public Use
  Company Number: 2003UW12019

PATIENT
  Sex: Female

DRUGS (1)
  1. FASLODEX [Suspect]
     Indication: BREAST CANCER

REACTIONS (1)
  - DISEASE PROGRESSION [None]
